FAERS Safety Report 10636434 (Version 2)
Quarter: 2014Q4

REPORT INFORMATION
  Report Type: Spontaneous
  Country: US (occurrence: US)
  Receive Date: 20141207
  Receipt Date: 20141207
  Transmission Date: 20150529
  Serious: No
  Sender: FDA-Public Use
  Company Number: US-GLAXOSMITHKLINE-A1072136A

PATIENT

DRUGS (5)
  1. SEROQUEL [Concomitant]
     Active Substance: QUETIAPINE FUMARATE
  2. HYCAMTIN [Suspect]
     Active Substance: TOPOTECAN HYDROCHLORIDE
     Indication: PRODUCT USED FOR UNKNOWN INDICATION
     Dosage: 4.75 DAILY FOR 5 DAYS EVERY 3 WEEKS.
     Route: 048
     Dates: start: 20140410
  3. MORPHINE [Concomitant]
     Active Substance: MORPHINE
  4. VALIUM [Concomitant]
     Active Substance: DIAZEPAM
  5. PERCOCET [Concomitant]
     Active Substance: ACETAMINOPHEN\OXYCODONE HYDROCHLORIDE

REACTIONS (3)
  - Peripheral swelling [Unknown]
  - Sinusitis [Unknown]
  - Nasopharyngitis [Unknown]

NARRATIVE: CASE EVENT DATE: 201408
